FAERS Safety Report 8880323 (Version 1)
Quarter: 2012Q4

REPORT INFORMATION
  Report Type: 
  Country: IT (occurrence: IT)
  Receive Date: 20121031
  Receipt Date: 20121031
  Transmission Date: 20130627
  Serious: Yes (Hospitalization)
  Sender: FDA-Public Use
  Company Number: PHHY2012IT096958

PATIENT
  Age: 57 Year
  Sex: Female

DRUGS (6)
  1. IRINOTECAN [Suspect]
     Indication: CHEMOTHERAPY
     Dosage: 1 DF, cyclic
     Route: 042
     Dates: start: 20120816, end: 20120816
  2. 5-FLUOROURACIL [Suspect]
     Indication: CHEMOTHERAPY
     Dosage: 1 DF, cyclic
     Route: 042
     Dates: start: 20120816, end: 20120816
  3. BEVACIZUMAB [Suspect]
     Indication: CHEMOTHERAPY
     Dosage: 1 DF, cyclic
     Route: 042
     Dates: start: 20120816, end: 20120816
  4. FOLIC ACID [Suspect]
     Indication: CHEMOTHERAPY
     Dosage: 1 DF, cyclic
     Route: 042
     Dates: start: 20120816, end: 20120816
  5. VALSARTAN [Concomitant]
  6. CARVEDILOL [Concomitant]

REACTIONS (6)
  - Abdominal pain [Recovering/Resolving]
  - Diarrhoea [Recovering/Resolving]
  - Leukopenia [Recovering/Resolving]
  - Pyrexia [Recovering/Resolving]
  - Heart rate increased [Unknown]
  - Blood pressure increased [Unknown]
